FAERS Safety Report 4778075-X (Version None)
Quarter: 2005Q3

REPORT INFORMATION
  Report Type: 
  Country: None (occurrence: None)
  Receive Date: 20050926
  Receipt Date: 20050913
  Transmission Date: 20060218
  Serious: Yes (Death)
  Sender: FDA-Public Use
  Company Number: HK-JNJFOC-20050902980

PATIENT
  Sex: Female

DRUGS (2)
  1. REMICADE [Suspect]
     Dosage: SECOND INFUSION
     Route: 042
  2. REMICADE [Suspect]
     Indication: RELAPSING POLYCHONDRITIS
     Dosage: FIRST INFUSION
     Route: 042

REACTIONS (1)
  - RELAPSING POLYCHONDRITIS [None]
